FAERS Safety Report 18341338 (Version 9)
Quarter: 2021Q4

REPORT INFORMATION
  Report Type: Report from Study
  Country: CR (occurrence: CR)
  Receive Date: 20201003
  Receipt Date: 20211108
  Transmission Date: 20220303
  Serious: Yes (Life-Threatening, Other)
  Sender: FDA-Public Use
  Company Number: NVSC2020CR267321

PATIENT
  Age: 55 Year
  Sex: Male

DRUGS (2)
  1. SECUKINUMAB [Suspect]
     Active Substance: SECUKINUMAB
     Indication: Psoriatic arthropathy
     Dosage: 150 MG, QW
     Route: 058
     Dates: start: 20200928
  2. SECUKINUMAB [Suspect]
     Active Substance: SECUKINUMAB
     Dosage: 150 MG, QMO
     Route: 058

REACTIONS (25)
  - Ill-defined disorder [Unknown]
  - Tachycardia [Unknown]
  - Diabetes mellitus [Recovered/Resolved]
  - Immunodeficiency [Not Recovered/Not Resolved]
  - Haemorrhage [Unknown]
  - Infarction [Unknown]
  - Pain [Recovering/Resolving]
  - Feeling abnormal [Unknown]
  - Anxiety [Recovered/Resolved]
  - Hypertension [Not Recovered/Not Resolved]
  - Fear [Not Recovered/Not Resolved]
  - Headache [Recovered/Resolved]
  - Headache [Not Recovered/Not Resolved]
  - Sleep disorder [Unknown]
  - Anxiety [Unknown]
  - Blood pressure increased [Not Recovered/Not Resolved]
  - Bronchial disorder [Recovering/Resolving]
  - Arthritis [Recovering/Resolving]
  - Blood pressure abnormal [Unknown]
  - Therapeutic product effect incomplete [Unknown]
  - Arterial disorder [Unknown]
  - Inflammation [Unknown]
  - Swelling [Unknown]
  - Injury [Unknown]
  - Limb injury [Unknown]
